FAERS Safety Report 12406339 (Version 1)
Quarter: 2016Q2

REPORT INFORMATION
  Report Type: Spontaneous
  Country: GB (occurrence: GB)
  Receive Date: 20160526
  Receipt Date: 20160526
  Transmission Date: 20160815
  Serious: Yes (Other)
  Sender: FDA-Public Use
  Company Number: GB-WATSON-2016-10872

PATIENT
  Age: 81 Year
  Sex: Male

DRUGS (4)
  1. METHOTREXATE (METHOTREXATE SODIUM) [Suspect]
     Active Substance: METHOTREXATE SODIUM
     Indication: RHEUMATOID ARTHRITIS
     Dosage: 12.5 MG, 1/WEEK
     Route: 065
  2. VALACICLOVIR [Concomitant]
     Active Substance: VALACYCLOVIR HYDROCHLORIDE
     Indication: NECROTISING RETINITIS
     Dosage: 1 G, TID
     Route: 065
  3. VALGANCICLOVIR. [Concomitant]
     Active Substance: VALGANCICLOVIR
     Indication: NECROTISING RETINITIS
     Dosage: 900 MG, BID
     Route: 065
  4. PREDNISOLONE (UNKNOWN) [Suspect]
     Active Substance: PREDNISOLONE
     Indication: RHEUMATOID ARTHRITIS
     Dosage: 7.5 MG, DAILY
     Route: 065

REACTIONS (1)
  - Eye infection toxoplasmal [Recovered/Resolved]
